FAERS Safety Report 19240741 (Version 2)
Quarter: 2021Q2

REPORT INFORMATION
  Report Type: Spontaneous
  Country: US (occurrence: US)
  Receive Date: 20210511
  Receipt Date: 20210604
  Transmission Date: 20210717
  Serious: Yes (Hospitalization)
  Sender: FDA-Public Use
  Company Number: US-ASTRAZENECA-2021A394721

PATIENT
  Age: 69 Year
  Sex: Female
  Weight: 68 kg

DRUGS (2)
  1. BYDUREON BCISE [Suspect]
     Active Substance: EXENATIDE
     Indication: DIABETES MELLITUS
     Route: 058
     Dates: start: 20210503
  2. BYDUREON [Suspect]
     Active Substance: EXENATIDE
     Indication: DIABETES MELLITUS
     Route: 058
     Dates: start: 2017, end: 20210426

REACTIONS (7)
  - Injection site pain [Unknown]
  - COVID-19 [Unknown]
  - Device delivery system issue [Unknown]
  - Device defective [Unknown]
  - Injection site haemorrhage [Unknown]
  - Device malfunction [Unknown]
  - Device malfunction [Unknown]

NARRATIVE: CASE EVENT DATE: 2021
